FAERS Safety Report 4413654-0 (Version None)
Quarter: 2004Q2

REPORT INFORMATION
  Report Type: 
  Country: None (occurrence: None)
  Receive Date: 20040630
  Receipt Date: 20040426
  Transmission Date: 20050107
  Serious: No
  Sender: FDA-Public Use
  Company Number: 04P-163-0258814-00

PATIENT
  Age: 70 Year
  Sex: Male
  Weight: 77.1115 kg

DRUGS (7)
  1. HUMIRA [Suspect]
     Indication: RHEUMATOID ARTHRITIS
     Dosage: 0.8 ML, 1 IN 2 WK, SUBCUTANEOUS
     Route: 058
     Dates: start: 20030901, end: 20040301
  2. INSULIN [Concomitant]
  3. GLUCOPHAGE [Concomitant]
  4. LIPTON [Concomitant]
  5. TERAZOSIN HYDROCHLORIDE [Concomitant]
  6. WATER PILL [Concomitant]
  7. PAIN PILL [Concomitant]

REACTIONS (2)
  - OEDEMA PERIPHERAL [None]
  - RASH [None]
